FAERS Safety Report 15127229 (Version 1)
Quarter: 2018Q3

REPORT INFORMATION
  Report Type: Spontaneous
  Country: US (occurrence: US)
  Receive Date: 20180710
  Receipt Date: 20180710
  Transmission Date: 20181010
  Serious: No
  Sender: FDA-Public Use
  Company Number: US-MYLANLABS-2016M1038709

PATIENT
  Age: 69 Year
  Sex: Female
  Weight: 48.54 kg

DRUGS (3)
  1. CALCIUM WITH VITAMIN D [Concomitant]
     Active Substance: CALCIUM\VITAMIN D
     Indication: VITAMIN SUPPLEMENTATION
     Route: 048
  2. LEVOTHYROXINE SODIUM TABLETS, USP [Suspect]
     Active Substance: LEVOTHYROXINE SODIUM
     Indication: HYPOTHYROIDISM
     Route: 048
     Dates: start: 20140625
  3. CENTRUM SILVER [Concomitant]
     Active Substance: MINERALS\VITAMINS
     Indication: VITAMIN SUPPLEMENTATION
     Route: 048

REACTIONS (1)
  - Fatigue [Not Recovered/Not Resolved]

NARRATIVE: CASE EVENT DATE: 201407
